FAERS Safety Report 12211555 (Version 2)
Quarter: 2016Q2

REPORT INFORMATION
  Report Type: Other
  Country: FR (occurrence: FR)
  Receive Date: 20160325
  Receipt Date: 20160614
  Transmission Date: 20160815
  Serious: Yes (Hospitalization, Other)
  Sender: FDA-Public Use
  Company Number: FR-SYMPLMED PHARMACEUTICALS-2016SYMPLMED000173

PATIENT

DRUGS (4)
  1. KARDEGIC [Concomitant]
     Active Substance: ASPIRIN LYSINE
     Indication: CAROTID ARTERY OCCLUSION
     Dosage: UNK
     Dates: start: 201508
  2. PLAVIX [Concomitant]
     Active Substance: CLOPIDOGREL BISULFATE
     Indication: CAROTID ARTERY OCCLUSION
     Dosage: UNK
     Dates: start: 201508, end: 201510
  3. COVERAM [Suspect]
     Active Substance: AMLODIPINE\PERINDOPRIL
     Indication: PRODUCT USED FOR UNKNOWN INDICATION
     Dosage: UNK
     Route: 048
     Dates: start: 201508, end: 20160307
  4. CRESTOR [Concomitant]
     Active Substance: ROSUVASTATIN CALCIUM
     Indication: CAROTID ARTERY OCCLUSION
     Dosage: UNK
     Dates: start: 201508, end: 201510

REACTIONS (7)
  - Eczema [Recovered/Resolved]
  - Blood immunoglobulin E increased [Recovered/Resolved]
  - Psoriasis [Recovered/Resolved]
  - Pruritus generalised [Recovered/Resolved]
  - Oedema peripheral [Recovered/Resolved]
  - Eosinophil count increased [Unknown]
  - Bronchial carcinoma [Unknown]

NARRATIVE: CASE EVENT DATE: 201508
